FAERS Safety Report 4430461-3 (Version None)
Quarter: 2004Q3

REPORT INFORMATION
  Report Type: 
  Country: None (occurrence: None)
  Receive Date: 20040721
  Receipt Date: 20040520
  Transmission Date: 20050211
  Serious: Yes (Other)
  Sender: FDA-Public Use
  Company Number: WAES 0405USA01511

PATIENT
  Age: 64 Year
  Sex: Female
  Weight: 91.6266 kg

DRUGS (4)
  1. VIOXX [Suspect]
     Dosage: PO
     Route: 048
     Dates: start: 20020101, end: 20030508
  2. STUDY DRUG (UNSPECIFIED) [Suspect]
     Indication: RENAL CELL CARCINOMA STAGE UNSPECIFIED
     Dosage: 1449 MG/3WK ON/1WK
     Dates: start: 20021113, end: 20030618
  3. ZOMETA [Suspect]
     Indication: METASTASES TO BONE
     Dosage: IV
     Route: 042
     Dates: start: 20030401, end: 20030422
  4. AREDIA [Concomitant]

REACTIONS (1)
  - RENAL FAILURE ACUTE [None]
